FAERS Safety Report 20173378 (Version 2)
Quarter: 2021Q4

REPORT INFORMATION
  Report Type: Spontaneous
  Country: US (occurrence: US)
  Receive Date: 20211211
  Receipt Date: 20211220
  Transmission Date: 20220303
  Serious: Yes (Disabling)
  Sender: FDA-Public Use
  Company Number: US-TEVA-2021-US-1986521

PATIENT

DRUGS (1)
  1. ADDERALL [Suspect]
     Active Substance: AMPHETAMINE ASPARTATE\AMPHETAMINE SULFATE\DEXTROAMPHETAMINE SACCHARATE\DEXTROAMPHETAMINE SULFATE
     Indication: Attention deficit hyperactivity disorder
     Route: 065
     Dates: start: 2012, end: 2020

REACTIONS (7)
  - Disability [Unknown]
  - Adverse event [Unknown]
  - Memory impairment [Unknown]
  - Disturbance in attention [Unknown]
  - Dysgraphia [Unknown]
  - Therapeutic product effect decreased [Unknown]
  - Drug ineffective [Unknown]
